FAERS Safety Report 7360413-5 (Version None)
Quarter: 2011Q1

REPORT INFORMATION
  Report Type: 
  Country: None (occurrence: None)
  Receive Date: 20110318
  Receipt Date: 20100909
  Transmission Date: 20110831
  Serious: Yes (Other)
  Sender: FDA-Public Use
  Company Number: US-BAYER-201014043NA

PATIENT
  Sex: Female
  Weight: 49.887 kg

DRUGS (8)
  1. NSAID'S [Concomitant]
  2. OCELLA [Suspect]
     Indication: ORAL CONTRACEPTION
     Dosage: UNK
     Dates: start: 20040101, end: 20080101
  3. DICYCLOMINE [Concomitant]
  4. ERYTHROMYCIN [Concomitant]
  5. YASMIN [Suspect]
     Indication: ORAL CONTRACEPTION
     Dosage: UNK
     Route: 048
     Dates: start: 20040101, end: 20080101
  6. SULFAMETHOXAZOLE AND TRIMETHOPRIM [Concomitant]
     Dosage: UNK
     Dates: start: 20070901
  7. PHENAZOPYRIDINE HCL TAB [Concomitant]
     Dosage: UNK
     Dates: start: 20070901
  8. KEFLEX [Concomitant]

REACTIONS (6)
  - NAUSEA [None]
  - ABDOMINAL PAIN UPPER [None]
  - CHOLECYSTITIS [None]
  - DIARRHOEA [None]
  - GALLBLADDER DISORDER [None]
  - ABDOMINAL PAIN [None]
